FAERS Safety Report 8974378 (Version 2)
Quarter: 2013Q1

REPORT INFORMATION
  Report Type: Spontaneous
  Country: US (occurrence: None)
  Receive Date: 20121211
  Receipt Date: 20130314
  Transmission Date: 20140127
  Serious: Yes (Hospitalization)
  Sender: FDA-Public Use
  Company Number: US-010272

PATIENT
  Age: 47 Year
  Sex: Female
  Weight: 66.23 kg

DRUGS (3)
  1. TRANEXAMIC ACID [Suspect]
     Indication: MENORRHAGIA
     Route: 048
     Dates: start: 201010, end: 20121105
  2. LISINOPRIL [Concomitant]
  3. HYDROCHLOROTHIAZIDE [Concomitant]

REACTIONS (2)
  - Pelvic venous thrombosis [None]
  - Deep vein thrombosis [None]
